FAERS Safety Report 25220661 (Version 1)
Quarter: 2025Q2

REPORT INFORMATION
  Report Type: Report from Study
  Country: US (occurrence: US)
  Receive Date: 20250421
  Receipt Date: 20250421
  Transmission Date: 20250716
  Serious: Yes (Other)
  Sender: ABBVIE
  Company Number: US-ABBVIE-6230325

PATIENT
  Sex: Female

DRUGS (1)
  1. SKYRIZI [Suspect]
     Active Substance: RISANKIZUMAB-RZAA
     Indication: Crohn^s disease
     Route: 058
     Dates: start: 20240722

REACTIONS (8)
  - Intestinal obstruction [Unknown]
  - Malaise [Not Recovered/Not Resolved]
  - Renal failure [Unknown]
  - Dyspnoea [Unknown]
  - Pain [Unknown]
  - Blood potassium decreased [Not Recovered/Not Resolved]
  - Feeling abnormal [Not Recovered/Not Resolved]
  - Illness [Unknown]
